FAERS Safety Report 9941742 (Version 2)
Quarter: 2014Q1

REPORT INFORMATION
  Report Type: Report from Study
  Country: US (occurrence: US)
  Receive Date: 20140303
  Receipt Date: 20140303
  Transmission Date: 20141002
  Serious: No
  Sender: FDA-Public Use
  Company Number: US-ABBVIE-12P-163-0999410-00

PATIENT
  Age: 52 Year
  Sex: Female
  Weight: 90.8 kg

DRUGS (6)
  1. HUMIRA [Suspect]
     Indication: PSORIATIC ARTHROPATHY
     Route: 058
     Dates: start: 201207
  2. HUMIRA [Suspect]
     Indication: PSORIASIS
  3. PROTONIX [Concomitant]
     Indication: GASTROOESOPHAGEAL REFLUX DISEASE
  4. PREDNISONE [Concomitant]
     Indication: PSORIATIC ARTHROPATHY
  5. METHOTREXATE [Concomitant]
     Indication: PSORIATIC ARTHROPATHY
  6. FOLIC ACID [Concomitant]
     Indication: ILL-DEFINED DISORDER

REACTIONS (7)
  - Device malfunction [Unknown]
  - Incorrect dose administered [Unknown]
  - Device malfunction [Unknown]
  - Incorrect dose administered [Unknown]
  - Injection site reaction [Recovered/Resolved]
  - Injection site pain [Recovered/Resolved]
  - Injection site pain [Recovered/Resolved]
